FAERS Safety Report 8573475-4 (Version None)
Quarter: 2012Q3

REPORT INFORMATION
  Report Type: 
  Country: None (occurrence: None)
  Receive Date: 20120806
  Receipt Date: 20120726
  Transmission Date: 20120928
  Serious: Yes (Hospitalization)
  Sender: FDA-Public Use
  Company Number: CH-ELI_LILLY_AND_COMPANY-CH201207008750

PATIENT
  Age: 74 Year
  Sex: Female

DRUGS (6)
  1. EFFIENT [Suspect]
     Dosage: UNK
     Route: 048
  2. ATORVASTATIN CALCIUM [Concomitant]
  3. METOPROLOL TARTRATE [Concomitant]
     Dosage: 50 MG, UNK
     Route: 048
  4. ASPIRIN [Concomitant]
     Dosage: 100 MG, QD
     Route: 048
     Dates: start: 20120401, end: 20120510
  5. EFFIENT [Suspect]
     Dosage: UNK
     Route: 048
     Dates: start: 20120401, end: 20120510
  6. METFORMIN HCL [Concomitant]
     Dosage: 1000 MG, UNK
     Route: 048

REACTIONS (6)
  - MELAENA [None]
  - GASTRIC ULCER [None]
  - SYNCOPE [None]
  - ANAEMIA [None]
  - FALL [None]
  - WOUND HAEMORRHAGE [None]
